FAERS Safety Report 11380911 (Version 2)
Quarter: 2015Q3

REPORT INFORMATION
  Report Type: Spontaneous
  Country: US (occurrence: US)
  Receive Date: 20150814
  Receipt Date: 20150910
  Transmission Date: 20151125
  Serious: No
  Sender: FDA-Public Use
  Company Number: US-JNJFOC-20150720228

PATIENT
  Age: 67 Year
  Sex: Female
  Weight: 43.09 kg

DRUGS (3)
  1. IMODIUM MULTI-SYMPTOM RELIEF [Suspect]
     Active Substance: DIMETHICONE\LOPERAMIDE HYDROCHLORIDE
     Route: 048
  2. SYNTHROID [Concomitant]
     Active Substance: LEVOTHYROXINE SODIUM
     Indication: HYPOTHYROIDISM
     Route: 065
     Dates: start: 2001
  3. IMODIUM MULTI-SYMPTOM RELIEF [Suspect]
     Active Substance: DIMETHICONE\LOPERAMIDE HYDROCHLORIDE
     Indication: PRODUCT USED FOR UNKNOWN INDICATION
     Dosage: CAPLET ONE TIME
     Route: 048
     Dates: start: 20150727, end: 20150727

REACTIONS (6)
  - Speech disorder [Recovered/Resolved]
  - Headache [Recovered/Resolved]
  - Feeling cold [Recovered/Resolved]
  - Incorrect dose administered [Recovered/Resolved]
  - Dysgraphia [Recovered/Resolved]
  - Tremor [Recovered/Resolved]

NARRATIVE: CASE EVENT DATE: 20150727
